FAERS Safety Report 5219605-3 (Version None)
Quarter: 2007Q1

REPORT INFORMATION
  Report Type: 
  Country: None (occurrence: None)
  Receive Date: 20070125
  Receipt Date: 20061012
  Transmission Date: 20070707
  Serious: Yes (Other)
  Sender: FDA-Public Use
  Company Number: US-PFIZER INC-2006027750

PATIENT
  Sex: Male
  Weight: 117.5 kg

DRUGS (8)
  1. BEXTRA [Suspect]
     Indication: BACK PAIN
     Route: 048
  2. LIPITOR [Concomitant]
  3. NORVASC [Concomitant]
  4. TRICOR [Concomitant]
  5. PLAVIX [Concomitant]
  6. TOPROL-XL [Concomitant]
  7. HYDROCHLOROTHIAZIDE [Concomitant]
  8. ASPIRIN [Concomitant]

REACTIONS (1)
  - GRANULOMA ANNULARE [None]
